FAERS Safety Report 5721321-6 (Version None)
Quarter: 2008Q2

REPORT INFORMATION
  Report Type: 
  Country: None (occurrence: None)
  Receive Date: 20080424
  Receipt Date: 20080416
  Transmission Date: 20081010
  Serious: Yes (Other)
  Sender: FDA-Public Use
  Company Number: GXKR2008GB03684

PATIENT
  Age: 72 Year
  Sex: Male

DRUGS (9)
  1. VERAPAMIL [Suspect]
     Indication: ATRIAL FIBRILLATION
     Dosage: 160 MG, ORAL
     Route: 048
     Dates: start: 20080328, end: 20080401
  2. ACETYLSALICYLIC ACID SRT [Concomitant]
  3. FELODIPINE [Concomitant]
  4. FUROSEMIDE [Concomitant]
  5. HUMULIN M3  (INSULIN HUMAN) [Concomitant]
  6. ACETAMINOPHEN [Concomitant]
  7. SALBUTAMOL  (SALBUTAMOL) [Concomitant]
  8. SIMVASTATIN [Concomitant]
  9. TAMSULOSIN HCL [Concomitant]

REACTIONS (3)
  - SWELLING FACE [None]
  - TACHYCARDIA [None]
  - WHEEZING [None]
